FAERS Safety Report 8029196-X (Version None)
Quarter: 2012Q1

REPORT INFORMATION
  Report Type: 
  Country: None (occurrence: None)
  Receive Date: 20120106
  Receipt Date: 20120103
  Transmission Date: 20120608
  Serious: Yes (Hospitalization, Other)
  Sender: FDA-Public Use
  Company Number: PHHY2012DE000497

PATIENT
  Age: 74 Year
  Sex: Male

DRUGS (3)
  1. DIOVAN [Suspect]
     Indication: HYPERTENSION
     Dosage: UNK,
     Route: 048
  2. HYDROCHLOROTHIAZIDE [Suspect]
     Dosage: UNK,
     Route: 048
  3. BETA BLOCKING AGENTS [Concomitant]
     Dosage: UNK,

REACTIONS (3)
  - BLOOD GLUCOSE INCREASED [None]
  - LOSS OF CONSCIOUSNESS [None]
  - DIABETES MELLITUS [None]
